FAERS Safety Report 15326118 (Version 1)
Quarter: 2018Q3

REPORT INFORMATION
  Report Type: Spontaneous
  Country: US (occurrence: US)
  Receive Date: 20180828
  Receipt Date: 20180828
  Transmission Date: 20181010
  Serious: Yes (Death, Other)
  Sender: FDA-Public Use
  Company Number: PHHY2018US081147

PATIENT

DRUGS (3)
  1. DEXAMETHASONE. [Concomitant]
     Active Substance: DEXAMETHASONE
     Indication: PREMEDICATION
     Route: 065
  2. TOPOTECAN [Suspect]
     Active Substance: TOPOTECAN HYDROCHLORIDE
     Indication: SMALL CELL LUNG CANCER
     Dosage: 1 MG/M2, QD
     Route: 042
  3. TIVANTINIB [Suspect]
     Active Substance: TIVANTINIB
     Indication: SMALL CELL LUNG CANCER
     Dosage: 120 MG, BID
     Route: 048

REACTIONS (5)
  - Neutropenia [Unknown]
  - Neutropenic sepsis [Unknown]
  - Acute kidney injury [Fatal]
  - Rhabdomyolysis [Unknown]
  - Thrombocytopenia [Unknown]
